FAERS Safety Report 20070086 (Version 1)
Quarter: 2021Q4

REPORT INFORMATION
  Report Type: Other
  Country: DE (occurrence: DE)
  Receive Date: 20211115
  Receipt Date: 20211115
  Transmission Date: 20220303
  Serious: Yes (Other)
  Sender: FDA-Public Use
  Company Number: DE-EMBRYOTOX-202010250

PATIENT
  Age: 39 Year
  Sex: Female
  Weight: 63 kg

DRUGS (8)
  1. QUETIAPINE FUMARATE [Suspect]
     Active Substance: QUETIAPINE FUMARATE
     Indication: Psychotic symptom
     Dosage: 200 MILLIGRAM, QD
     Route: 048
     Dates: start: 20200820
  2. QUETIAPINE FUMARATE [Suspect]
     Active Substance: QUETIAPINE FUMARATE
     Dosage: 150 MILLIGRAM, QD
     Route: 048
     Dates: end: 20210528
  3. LEVOTHYROXINE [Suspect]
     Active Substance: LEVOTHYROXINE
     Indication: Hypothyroidism
     Dosage: 75 MICROGRAM, QD
     Route: 048
     Dates: start: 20200820, end: 20210528
  4. BOOSTRIX [Suspect]
     Active Substance: TETANUS TOXOID, REDUCED DIPHTHERIA TOXOID AND ACELLULAR PERTUSSIS VACCINE, ADSORBED ANTIGENS
     Indication: Immunisation
     Dosage: UNK
     Route: 030
     Dates: start: 20210309, end: 20210309
  5. FOLIC ACID [Suspect]
     Active Substance: FOLIC ACID
     Indication: Prophylaxis of neural tube defect
     Dosage: 5 MILLIGRAM, QD
     Route: 048
     Dates: start: 20200820, end: 20210528
  6. ACTRAPID [Suspect]
     Active Substance: INSULIN HUMAN
     Indication: Gestational diabetes
     Dosage: 4 INTERNATIONAL UNIT, QD
     Route: 058
     Dates: start: 20210223
  7. ACTRAPID [Suspect]
     Active Substance: INSULIN HUMAN
     Dosage: 4 IE, QD VARYING DOSAGE 2 TO 4 INTERN. UNITS DAILY
     Route: 058
     Dates: end: 20210528
  8. VAXIGRIPTETRA [Suspect]
     Active Substance: INFLUENZA VIRUS VACCINE QUADRIVALENT TYPE A+B
     Indication: Immunisation
     Dosage: UNK
     Route: 030
     Dates: start: 20201209, end: 20201209

REACTIONS (3)
  - Gestational diabetes [Recovered/Resolved]
  - Exposure during pregnancy [Unknown]
  - Normal newborn [Unknown]
